FAERS Safety Report 11631815 (Version 1)
Quarter: 2015Q4

REPORT INFORMATION
  Report Type: Spontaneous
  Country: CN (occurrence: CN)
  Receive Date: 20151015
  Receipt Date: 20151015
  Transmission Date: 20160304
  Serious: No
  Sender: FDA-Public Use
  Company Number: CN-GLENMARK PHARMACEUTICALS INC, USA.-2015GMK018670

PATIENT
  Age: 82 Year
  Sex: Male

DRUGS (7)
  1. TRAMAL [Suspect]
     Active Substance: TRAMADOL
     Dosage: 200 MG, QD
  2. TRAMAL [Suspect]
     Active Substance: TRAMADOL
     Indication: NEURALGIA
     Dosage: 300 MG, QD
  3. TRAMAL [Suspect]
     Active Substance: TRAMADOL
     Indication: CANCER PAIN
     Dosage: 100 MG, QD
  4. ETORICOXIB [Suspect]
     Active Substance: ETORICOXIB
     Indication: CANCER PAIN
     Dosage: 60 MG, QD
  5. GABAPENTIN. [Suspect]
     Active Substance: GABAPENTIN
     Indication: CANCER PAIN
     Dosage: 0.1 G, QD
  6. GABAPENTIN. [Suspect]
     Active Substance: GABAPENTIN
     Indication: NEURALGIA
     Dosage: 0.2 G, QD
     Route: 048
  7. ETORICOXIB [Suspect]
     Active Substance: ETORICOXIB
     Indication: NEURALGIA
     Dosage: 120 MG, QD
     Route: 048

REACTIONS (2)
  - Therapeutic response unexpected [Unknown]
  - Off label use [Unknown]
